FAERS Safety Report 9665002 (Version 1)
Quarter: 2013Q4

REPORT INFORMATION
  Report Type: Report from Study
  Country: US (occurrence: US)
  Receive Date: 20131101
  Receipt Date: 20131101
  Transmission Date: 20140711
  Serious: Yes (Other)
  Sender: FDA-Public Use
  Company Number: PHEH2013US022880

PATIENT
  Sex: Male

DRUGS (2)
  1. TEKTURNA [Suspect]
     Dosage: 300 MG, UNK
  2. EXFORGE [Suspect]
     Dosage: UNK (320/5MG), UNK

REACTIONS (3)
  - Weight decreased [Unknown]
  - Eating disorder [Unknown]
  - Malaise [Unknown]
